FAERS Safety Report 4527846-3 (Version None)
Quarter: 2004Q4

REPORT INFORMATION
  Report Type: 
  Country: None (occurrence: None)
  Receive Date: 20041123
  Receipt Date: 20040526
  Transmission Date: 20050328
  Serious: Yes (Hospitalization)
  Sender: FDA-Public Use
  Company Number: ATO-04-0525

PATIENT
  Age: 50 Year
  Sex: Male
  Weight: 63 kg

DRUGS (4)
  1. TRISENOX [Suspect]
     Indication: METASTATIC MALIGNANT MELANOMA
     Dosage: 19 MG (19 MG, DAILY), IVI
     Dates: start: 20040412, end: 20040416
  2. ASCORBIC ACID [Suspect]
     Indication: METASTATIC MALIGNANT MELANOMA
     Dosage: 1000 MG (1000 MG, DAILY), IVI
     Dates: start: 20040412, end: 20040416
  3. ASCORBIC ACID [Suspect]
     Indication: METASTATIC MALIGNANT MELANOMA
     Dosage: 1000 MG (1000 MG, DAILY), IVI
     Dates: start: 20040503, end: 20040513
  4. . [Concomitant]

REACTIONS (10)
  - DISEASE PROGRESSION [None]
  - DYSPNOEA [None]
  - FATIGUE [None]
  - HYPERCALCAEMIA [None]
  - LIVER FUNCTION TEST ABNORMAL [None]
  - MALIGNANT NEOPLASM PROGRESSION [None]
  - NAUSEA [None]
  - PAIN [None]
  - PERIPHERAL SENSORY NEUROPATHY [None]
  - VOMITING [None]
